FAERS Safety Report 6314051-3 (Version None)
Quarter: 2009Q3

REPORT INFORMATION
  Report Type: 
  Country: None (occurrence: None)
  Receive Date: 20090814
  Receipt Date: 20090731
  Transmission Date: 20100115
  Serious: Yes (Other)
  Sender: FDA-Public Use
  Company Number: 1000008034

PATIENT
  Age: 28 Year
  Sex: Female

DRUGS (1)
  1. ESCITALOPRAM [Suspect]
     Dosage: 20 MG (20 MG, 1 IN 1 D)

REACTIONS (1)
  - BILE DUCT NECROSIS [None]
